FAERS Safety Report 7587783-7 (Version None)
Quarter: 2011Q3

REPORT INFORMATION
  Report Type: 
  Country: None (occurrence: None)
  Receive Date: 20110705
  Receipt Date: 20110623
  Transmission Date: 20111222
  Serious: No
  Sender: FDA-Public Use
  Company Number: US-BIOGENIDEC-2011BI015986

PATIENT
  Sex: Female

DRUGS (1)
  1. TYSABRI [Suspect]
     Indication: MULTIPLE SCLEROSIS
     Route: 042
     Dates: start: 20100601

REACTIONS (17)
  - FALL [None]
  - AGITATION [None]
  - WHITE BLOOD CELL COUNT INCREASED [None]
  - ALANINE AMINOTRANSFERASE INCREASED [None]
  - ANXIETY [None]
  - GAIT DISTURBANCE [None]
  - FRUSTRATION [None]
  - PAIN IN EXTREMITY [None]
  - ABDOMINAL PAIN [None]
  - LIMB INJURY [None]
  - ASPARTATE AMINOTRANSFERASE INCREASED [None]
  - VOMITING [None]
  - SPEECH DISORDER [None]
  - LIVER FUNCTION TEST ABNORMAL [None]
  - GASTROINTESTINAL DISORDER [None]
  - CONSTIPATION [None]
  - BLOOD BILIRUBIN INCREASED [None]
